FAERS Safety Report 14641462 (Version 3)
Quarter: 2018Q3

REPORT INFORMATION
  Report Type: Spontaneous
  Country: IT (occurrence: IT)
  Receive Date: 20180315
  Receipt Date: 20180820
  Transmission Date: 20181010
  Serious: Yes (Life-Threatening)
  Sender: FDA-Public Use
  Company Number: IT-PFIZER INC-2018103819

PATIENT
  Age: 25 Year
  Sex: Male

DRUGS (3)
  1. TEXTAZO [Suspect]
     Active Substance: PIPERACILLIN SODIUM\TAZOBACTAM SODIUM
     Indication: CHOLECYSTITIS
     Dosage: 13.5 G, 1X/DAY
     Route: 042
     Dates: start: 20180201, end: 20180219
  2. TYGACIL [Suspect]
     Active Substance: TIGECYCLINE
     Indication: CHOLECYSTITIS
     Dosage: 100 MG, 1X/DAY
     Route: 042
     Dates: start: 20180205, end: 20180219
  3. OMEPRAZOLE. [Concomitant]
     Active Substance: OMEPRAZOLE
     Dosage: 40 MG, UNK
     Route: 042

REACTIONS (1)
  - Agranulocytosis [Not Recovered/Not Resolved]

NARRATIVE: CASE EVENT DATE: 20180219
